FAERS Safety Report 6901737-2 (Version None)
Quarter: 2010Q3

REPORT INFORMATION
  Report Type: 
  Country: None (occurrence: None)
  Receive Date: 20100803
  Receipt Date: 20080307
  Transmission Date: 20110219
  Serious: No
  Sender: FDA-Public Use
  Company Number: US-PFIZER INC-2008023150

PATIENT
  Sex: Female
  Weight: 77.3 kg

DRUGS (13)
  1. LYRICA [Suspect]
     Indication: FIBROMYALGIA
     Dates: start: 20080304, end: 20080305
  2. SPIRONOLACTONE [Concomitant]
  3. HYDROCHLOROTHIAZIDE [Concomitant]
  4. WARFARIN SODIUM [Concomitant]
  5. ADVAIR DISKUS 100/50 [Concomitant]
  6. SYNTHROID [Concomitant]
  7. ALLOPURINOL [Concomitant]
  8. VYTORIN [Concomitant]
  9. VITAMIN TAB [Concomitant]
  10. TOPAMAX [Concomitant]
  11. FIORICET [Concomitant]
  12. GLUCOPHAGE [Concomitant]
  13. ANODYNE [Concomitant]

REACTIONS (5)
  - BALANCE DISORDER [None]
  - DIZZINESS [None]
  - FATIGUE [None]
  - FEAR [None]
  - PAIN [None]
